FAERS Safety Report 5941627-5 (Version None)
Quarter: 2008Q4

REPORT INFORMATION
  Report Type: 
  Country: None (occurrence: None)
  Receive Date: 20081031
  Receipt Date: 20081021
  Transmission Date: 20090506
  Serious: Yes (Hospitalization)
  Sender: FDA-Public Use
  Company Number: 2008-185606-NL

PATIENT
  Age: 28 Year
  Sex: Female
  Weight: 76.2 kg

DRUGS (2)
  1. NUVARING [Suspect]
     Indication: CONTRACEPTION
     Dosage: NI, 3 WEEKS IN, 1 WEEK OUT
     Dates: start: 20071201, end: 20080501
  2. NUVARING [Suspect]
     Indication: CONTRACEPTION
     Dosage: NI, 3 WEEKS IN, 1 WEEK OUT
     Dates: start: 20080701

REACTIONS (2)
  - CHOLELITHIASIS [None]
  - MENSTRUATION DELAYED [None]
